FAERS Safety Report 11402634 (Version 1)
Quarter: 2015Q3

REPORT INFORMATION
  Report Type: Spontaneous
  Country: US (occurrence: US)
  Receive Date: 20150821
  Receipt Date: 20150821
  Transmission Date: 20151125
  Serious: No
  Sender: FDA-Public Use
  Company Number: US-ROCHE-1347610

PATIENT
  Sex: Female

DRUGS (5)
  1. PEGASYS [Suspect]
     Active Substance: PEGINTERFERON ALFA-2A
     Indication: CHRONIC HEPATITIS C
     Route: 065
     Dates: start: 20131213
  2. LISINOPRIL. [Concomitant]
     Active Substance: LISINOPRIL
  3. RIBAVIRIN. [Suspect]
     Active Substance: RIBAVIRIN
     Indication: CHRONIC HEPATITIS C
     Route: 065
     Dates: start: 20131213
  4. TELAPREVIR [Suspect]
     Active Substance: TELAPREVIR
     Indication: CHRONIC HEPATITIS C
     Route: 065
     Dates: start: 20131213
  5. NOVOLOG [Concomitant]
     Active Substance: INSULIN ASPART
     Dosage: 30 UNITS OF NOVOLOG 70/30 INSULIN IN THE AM AND 20 UNITS IN THE PM.
     Route: 065

REACTIONS (6)
  - Dyspnoea [Unknown]
  - Platelet count decreased [Unknown]
  - Headache [Unknown]
  - Coagulopathy [Unknown]
  - Nausea [Unknown]
  - Anaemia [Unknown]
